FAERS Safety Report 14035243 (Version 2)
Quarter: 2017Q4

REPORT INFORMATION
  Report Type: Spontaneous
  Country: US (occurrence: US)
  Receive Date: 20171003
  Receipt Date: 20171010
  Transmission Date: 20180321
  Serious: No
  Sender: FDA-Public Use
  Company Number: US-PFIZER INC-2017423529

PATIENT
  Age: 48 Year
  Sex: Female
  Weight: 53 kg

DRUGS (5)
  1. CELEBREX [Concomitant]
     Active Substance: CELECOXIB
  2. AVINZA [Suspect]
     Active Substance: MORPHINE SULFATE
  3. EMBEDA [Suspect]
     Active Substance: MORPHINE SULFATE\NALTREXONE HYDROCHLORIDE
     Indication: PIRIFORMIS SYNDROME
     Dosage: 100 MG/4 MG ONE TABLET BY MOUTH EVERY 12 HOURS
     Route: 048
  4. MSIR [Suspect]
     Active Substance: MORPHINE SULFATE
  5. LYRICA [Concomitant]
     Active Substance: PREGABALIN

REACTIONS (6)
  - Piriformis syndrome [Not Recovered/Not Resolved]
  - Feeling abnormal [Unknown]
  - Drug effect incomplete [Unknown]
  - Intentional product misuse [Unknown]
  - Condition aggravated [Unknown]
  - Thinking abnormal [Unknown]

NARRATIVE: CASE EVENT DATE: 201709
